FAERS Safety Report 25189713 (Version 2)
Quarter: 2025Q2

REPORT INFORMATION
  Report Type: Spontaneous
  Country: JP (occurrence: JP)
  Receive Date: 20250411
  Receipt Date: 20250519
  Transmission Date: 20250717
  Serious: Yes (Other)
  Sender: BRACCO
  Company Number: JP-BRACCO-2025JP02089

PATIENT
  Age: 78 Year
  Sex: Male

DRUGS (7)
  1. IOMERON [Suspect]
     Active Substance: IOMEPROL
     Indication: Computerised tomogram
     Route: 042
     Dates: start: 20250319, end: 20250319
  2. AZILECT [Concomitant]
     Active Substance: RASAGILINE MESYLATE
  3. CARBIDOPA\LEVODOPA [Concomitant]
     Active Substance: CARBIDOPA\LEVODOPA
  4. DROXIDOPA [Concomitant]
     Active Substance: DROXIDOPA
  5. HERBALS [Concomitant]
     Active Substance: HERBALS
  6. MOVICOL [Concomitant]
     Active Substance: POLYETHYLENE GLYCOL 3350\POTASSIUM CHLORIDE\SODIUM BICARBONATE\SODIUM CHLORIDE
  7. Zonisamide od [Concomitant]

REACTIONS (4)
  - Musculoskeletal stiffness [Recovered/Resolved]
  - Urinary incontinence [Recovered/Resolved]
  - Dysuria [Unknown]
  - Anal incontinence [Unknown]

NARRATIVE: CASE EVENT DATE: 20250319
